FAERS Safety Report 14337776 (Version 1)
Quarter: 2017Q4

REPORT INFORMATION
  Report Type: Spontaneous
  Country: US (occurrence: US)
  Receive Date: 20171228
  Receipt Date: 20171228
  Transmission Date: 20180321
  Serious: No
  Sender: FDA-Public Use
  Company Number: None

PATIENT
  Sex: Female
  Weight: 77.11 kg

DRUGS (5)
  1. METHOTREXATE 50 MG/2ML MDV GENERIC [Suspect]
     Active Substance: METHOTREXATE SODIUM
     Indication: RHEUMATOID ARTHRITIS
     Route: 058
     Dates: start: 201611
  2. HUMIRA [Concomitant]
     Active Substance: ADALIMUMAB
  3. METHOTREXATE 50 MG/2ML MDV GENERIC [Suspect]
     Active Substance: METHOTREXATE SODIUM
     Indication: OSTEOPOROSIS
     Route: 058
     Dates: start: 201611
  4. METHOTREXATE 50 MG/2ML MDV GENERIC [Suspect]
     Active Substance: METHOTREXATE SODIUM
     Indication: OSTEOPOROTIC FRACTURE
     Route: 058
     Dates: start: 201611
  5. FORTEO [Suspect]
     Active Substance: TERIPARATIDE
     Route: 058
     Dates: start: 201706

REACTIONS (1)
  - Thrombosis [None]
